FAERS Safety Report 6181676-8 (Version None)
Quarter: 2009Q2

REPORT INFORMATION
  Report Type: 
  Country: None (occurrence: None)
  Receive Date: 20090501
  Receipt Date: 20090423
  Transmission Date: 20091009
  Serious: Yes (Life-Threatening, Hospitalization, Other)
  Sender: FDA-Public Use
  Company Number: 2008-00418

PATIENT
  Age: 35 Year
  Sex: Male
  Weight: 71 kg

DRUGS (12)
  1. VELCADE [Suspect]
     Indication: PERIPHERAL T-CELL LYMPHOMA UNSPECIFIED
     Dosage: 2.79 MG, INTRAVENOUS; 2.84 MG, INTRAVENOUS
     Route: 042
     Dates: start: 20061016, end: 20070420
  2. CYCLOPHOSPHAMIDE [Suspect]
     Indication: PERIPHERAL T-CELL LYMPHOMA UNSPECIFIED
     Dosage: INTRAVENOUS
     Route: 042
     Dates: start: 20061016, end: 20061128
  3. DOXORUBICIN HCL [Suspect]
     Indication: PERIPHERAL T-CELL LYMPHOMA UNSPECIFIED
     Dosage: INTRAVENOUS
     Route: 042
     Dates: start: 20061016, end: 20061128
  4. ELDISINE [Suspect]
     Indication: PERIPHERAL T-CELL LYMPHOMA UNSPECIFIED
     Dosage: INTRAVENOUS
     Route: 042
     Dates: start: 20061016, end: 20061202
  5. BLEOMYCIN SULFATE [Suspect]
     Indication: PERIPHERAL T-CELL LYMPHOMA UNSPECIFIED
     Dosage: INTRAVENOUS
     Route: 042
     Dates: start: 20061016, end: 20061202
  6. METHOTREXATE [Suspect]
     Indication: PERIPHERAL T-CELL LYMPHOMA UNSPECIFIED
     Dosage: INTRATHECAL
     Route: 037
     Dates: start: 20061017, end: 20061129
  7. PREDNISONE TAB [Suspect]
     Indication: PERIPHERAL T-CELL LYMPHOMA UNSPECIFIED
     Dosage: ORAL
     Route: 048
     Dates: start: 20061016, end: 20061202
  8. IFOSFAMIDE [Suspect]
     Indication: PERIPHERAL T-CELL LYMPHOMA UNSPECIFIED
     Dosage: INTRAVENOUS
     Route: 042
     Dates: start: 20070131, end: 20070321
  9. ETOPOSIDE [Suspect]
     Indication: PERIPHERAL T-CELL LYMPHOMA UNSPECIFIED
     Dosage: INTRAVENOUS
     Route: 042
     Dates: start: 20070131, end: 20070321
  10. CYTARABINE [Suspect]
     Indication: PERIPHERAL T-CELL LYMPHOMA UNSPECIFIED
     Dosage: SUBCUTANEOUS
     Route: 058
     Dates: start: 20070404, end: 20070423
  11. METHOTREXATE [Suspect]
     Indication: PERIPHERAL T-CELL LYMPHOMA UNSPECIFIED
     Dosage: INTRAVENOUS
     Route: 042
     Dates: start: 20061221, end: 20070110
  12. GRANOCYTE 13-34(LENOGRASTIM) [Suspect]
     Indication: PERIPHERAL T-CELL LYMPHOMA UNSPECIFIED
     Dosage: 33.60 MIU, SUBCUTANEOUS
     Route: 058
     Dates: start: 20060423, end: 20070401

REACTIONS (5)
  - ACUTE MYELOID LEUKAEMIA [None]
  - ASTHENIA [None]
  - GENERAL PHYSICAL CONDITION ABNORMAL [None]
  - NIGHT SWEATS [None]
  - PYREXIA [None]
